FAERS Safety Report 19587234 (Version 1)
Quarter: 2021Q3

REPORT INFORMATION
  Report Type: Spontaneous
  Country: US (occurrence: US)
  Receive Date: 20210720
  Receipt Date: 20210720
  Transmission Date: 20211014
  Serious: Yes (Other)
  Sender: FDA-Public Use
  Company Number: None

PATIENT
  Sex: Female

DRUGS (1)
  1. BUPRENORPHINE/NALOXONE 8MG?2MG [Suspect]
     Active Substance: BUPRENORPHINE\NALOXONE

REACTIONS (5)
  - Headache [None]
  - Nausea [None]
  - Abdominal discomfort [None]
  - Drug intolerance [None]
  - Product leakage [None]
